FAERS Safety Report 4756601-4 (Version None)
Quarter: 2005Q3

REPORT INFORMATION
  Report Type: 
  Country: None (occurrence: None)
  Receive Date: 20050825
  Receipt Date: 20050601
  Transmission Date: 20060218
  Serious: Yes (Life-Threatening, Hospitalization, Disabling, Other)
  Sender: FDA-Public Use
  Company Number: WAES 0503USA05249

PATIENT
  Age: 82 Year
  Sex: Female
  Weight: 66.2252 kg

DRUGS (7)
  1. VYTORIN [Suspect]
     Indication: CORONARY ARTERY DISEASE
     Dosage: 10-40 MG/DAILY/PO
     Route: 048
     Dates: start: 20050213, end: 20050315
  2. VYTORIN [Suspect]
     Indication: LIPIDS INCREASED
     Dosage: 10-40 MG/DAILY/PO
     Route: 048
     Dates: start: 20050213, end: 20050315
  3. COUMADIN [Concomitant]
  4. FOSAMAX [Concomitant]
  5. LASIX [Concomitant]
  6. PERSANTINE [Concomitant]
  7. WELCHOL [Concomitant]

REACTIONS (1)
  - RHABDOMYOLYSIS [None]
